FAERS Safety Report 10598571 (Version 2)
Quarter: 2015Q1

REPORT INFORMATION
  Report Type: Spontaneous
  Country: US (occurrence: None)
  Receive Date: 20141119
  Receipt Date: 20150220
  Transmission Date: 20150720
  Serious: No
  Sender: FDA-Public Use
  Company Number: 1000071579

PATIENT
  Age: 61 Year
  Sex: Female

DRUGS (13)
  1. TUDORZA PRESSAIR [Suspect]
     Active Substance: ACLIDINIUM BROMIDE
     Indication: CHRONIC OBSTRUCTIVE PULMONARY DISEASE
     Dosage: 800MCG (400MCG, 2 IN 1 D) RESPIRATORY (INHALATION)
     Route: 055
     Dates: start: 201407, end: 2014
  2. PANTOPRAZOLE [Concomitant]
     Active Substance: PANTOPRAZOLE SODIUM
  3. CHANTIX [Concomitant]
     Active Substance: VARENICLINE TARTRATE
  4. ALBUTEROL. [Concomitant]
     Active Substance: ALBUTEROL
  5. GABAPENTIN. [Concomitant]
     Active Substance: GABAPENTIN
  6. VICTOZA [Concomitant]
     Active Substance: LIRAGLUTIDE
  7. ADVAIR (SERETIDE) [Concomitant]
  8. RITALIN (METHYLPHENIDATE HYDROCHLORIDE) [Concomitant]
     Active Substance: METHYLPHENIDATE HYDROCHLORIDE
  9. ROPINIROLE (ROPINIROLE) [Concomitant]
     Active Substance: ROPINIROLE
  10. ANORO ELLIPTA (UMECLIDINIUM, VALANTEROL) [Concomitant]
  11. CRESTOR [Concomitant]
     Active Substance: ROSUVASTATIN CALCIUM
  12. NEXIUM [Concomitant]
     Active Substance: ESOMEPRAZOLE MAGNESIUM
  13. CELEXA [Concomitant]
     Active Substance: CITALOPRAM HYDROBROMIDE

REACTIONS (5)
  - Tongue ulceration [None]
  - Cough [None]
  - Hypersensitivity [None]
  - Oropharyngeal pain [None]
  - Stomatitis [None]

NARRATIVE: CASE EVENT DATE: 2014
